FAERS Safety Report 15196247 (Version 1)
Quarter: 2018Q3

REPORT INFORMATION
  Report Type: Spontaneous
  Country: FR (occurrence: FR)
  Receive Date: 20180725
  Receipt Date: 20180725
  Transmission Date: 20181010
  Serious: Yes (Other)
  Sender: FDA-Public Use
  Company Number: PHHY2018FR053316

PATIENT
  Age: 56 Year
  Sex: Male

DRUGS (3)
  1. ATORVASTATINE [Suspect]
     Active Substance: ATORVASTATIN
     Indication: ACUTE CORONARY SYNDROME
     Dosage: 80 MG, UNK (80 MG LE SOIR)
     Route: 048
     Dates: start: 20170407, end: 20180419
  2. BRINTELLIX [Concomitant]
     Active Substance: VORTIOXETINE HYDROBROMIDE
     Indication: DEPRESSION
     Dosage: 5 MG, UNK (5 MG LE MATIN)
     Route: 048
  3. ASPIRINE [Suspect]
     Active Substance: ASPIRIN
     Indication: ACUTE CORONARY SYNDROME
     Dosage: 100 MG, UNK (100 MG LE MATIN)
     Route: 048
     Dates: start: 20170407

REACTIONS (2)
  - Enthesopathy [Recovering/Resolving]
  - Arthralgia [Recovering/Resolving]

NARRATIVE: CASE EVENT DATE: 201705
